FAERS Safety Report 5651928-6 (Version None)
Quarter: 2008Q1

REPORT INFORMATION
  Report Type: 
  Country: None (occurrence: None)
  Receive Date: 20080305
  Receipt Date: 20080225
  Transmission Date: 20080703
  Serious: Yes (Death, Hospitalization, Other)
  Sender: FDA-Public Use
  Company Number: US-PFIZER INC-2007051029

PATIENT
  Sex: Female
  Weight: 95.3 kg

DRUGS (1)
  1. CELEBREX [Suspect]
     Indication: PAIN
     Route: 048
     Dates: start: 20010108, end: 20050327

REACTIONS (4)
  - CARDIOVASCULAR DISORDER [None]
  - CEREBROVASCULAR ACCIDENT [None]
  - HAEMORRHAGE [None]
  - VOMITING [None]
